FAERS Safety Report 10361957 (Version 2)
Quarter: 2014Q3

REPORT INFORMATION
  Report Type: Spontaneous
  Country: TR (occurrence: TR)
  Receive Date: 20140805
  Receipt Date: 20140805
  Transmission Date: 20150326
  Serious: Yes (Other)
  Sender: FDA-Public Use
  Company Number: TR-RANBAXY-2013R1-76140

PATIENT
  Age: 15 Year
  Sex: Female

DRUGS (1)
  1. ISOTRETINOIN [Suspect]
     Active Substance: ISOTRETINOIN
     Indication: ACNE
     Dosage: 40 MG, BID
     Route: 065

REACTIONS (5)
  - Anal fissure [Recovering/Resolving]
  - Cheilitis [Recovering/Resolving]
  - Xerosis [Recovering/Resolving]
  - Epistaxis [Recovering/Resolving]
  - Rectal haemorrhage [Recovering/Resolving]
